FAERS Safety Report 19595572 (Version 1)
Quarter: 2021Q3

REPORT INFORMATION
  Report Type: Report from Study
  Country: None (occurrence: BR)
  Receive Date: 20210722
  Receipt Date: 20210722
  Transmission Date: 20211014
  Serious: Yes (Disabling)
  Sender: FDA-Public Use
  Company Number: BR-ABBVIE-21K-020-4002950-00

PATIENT
  Age: 52 Year
  Sex: Female
  Weight: 110 kg

DRUGS (1)
  1. RINVOQ [Suspect]
     Active Substance: UPADACITINIB
     Indication: RHEUMATOID ARTHRITIS
     Route: 048
     Dates: start: 20210714, end: 202107

REACTIONS (7)
  - Headache [Unknown]
  - Retching [Unknown]
  - Diarrhoea [Unknown]
  - Aphasia [Unknown]
  - Erythema [Unknown]
  - Swelling face [Unknown]
  - Abdominal pain [Unknown]

NARRATIVE: CASE EVENT DATE: 202107
